FAERS Safety Report 26130472 (Version 1)
Quarter: 2025Q4

REPORT INFORMATION
  Report Type: Spontaneous
  Country: KR (occurrence: KR)
  Receive Date: 20251208
  Receipt Date: 20251208
  Transmission Date: 20260117
  Serious: Yes (Other)
  Sender: MYLAN
  Company Number: KR-MYLANLABS-2025M1103035

PATIENT
  Age: 70 Year
  Sex: Female

DRUGS (64)
  1. NORVASC [Interacting]
     Active Substance: AMLODIPINE BESYLATE
     Indication: Hypertension
     Dosage: 1 DOSAGE FORM, QD
     Dates: start: 20240920, end: 20241024
  2. NORVASC [Interacting]
     Active Substance: AMLODIPINE BESYLATE
     Dosage: 1 DOSAGE FORM, QD
     Route: 065
     Dates: start: 20240920, end: 20241024
  3. NORVASC [Interacting]
     Active Substance: AMLODIPINE BESYLATE
     Dosage: 1 DOSAGE FORM, QD
     Route: 065
     Dates: start: 20240920, end: 20241024
  4. NORVASC [Interacting]
     Active Substance: AMLODIPINE BESYLATE
     Dosage: 1 DOSAGE FORM, QD
     Dates: start: 20240920, end: 20241024
  5. ATORVASTATIN CALCIUM [Concomitant]
     Active Substance: ATORVASTATIN CALCIUM
     Dosage: 1 DOSAGE FORM, QD
     Dates: start: 20240913
  6. ATORVASTATIN CALCIUM [Concomitant]
     Active Substance: ATORVASTATIN CALCIUM
     Dosage: 1 DOSAGE FORM, QD
     Route: 065
     Dates: start: 20240913
  7. ATORVASTATIN CALCIUM [Concomitant]
     Active Substance: ATORVASTATIN CALCIUM
     Dosage: 1 DOSAGE FORM, QD
     Route: 065
     Dates: start: 20240913
  8. ATORVASTATIN CALCIUM [Concomitant]
     Active Substance: ATORVASTATIN CALCIUM
     Dosage: 1 DOSAGE FORM, QD
     Dates: start: 20240913
  9. EZETIMIBE [Concomitant]
     Active Substance: EZETIMIBE
     Indication: Lipids increased
     Dosage: 1 DOSAGE FORM, QD
     Dates: start: 20240914
  10. EZETIMIBE [Concomitant]
     Active Substance: EZETIMIBE
     Dosage: 1 DOSAGE FORM, QD
     Route: 065
     Dates: start: 20240914
  11. EZETIMIBE [Concomitant]
     Active Substance: EZETIMIBE
     Dosage: 1 DOSAGE FORM, QD
     Route: 065
     Dates: start: 20240914
  12. EZETIMIBE [Concomitant]
     Active Substance: EZETIMIBE
     Dosage: 1 DOSAGE FORM, QD
     Dates: start: 20240914
  13. CLOPIDOGREL BISULFATE [Concomitant]
     Active Substance: CLOPIDOGREL BISULFATE
     Indication: Cerebral infarction
     Dosage: 1 DOSAGE FORM, QD
     Route: 065
     Dates: start: 20240914, end: 20241024
  14. CLOPIDOGREL BISULFATE [Concomitant]
     Active Substance: CLOPIDOGREL BISULFATE
     Dosage: 1 DOSAGE FORM, QD
     Dates: start: 20240914, end: 20241024
  15. CLOPIDOGREL BISULFATE [Concomitant]
     Active Substance: CLOPIDOGREL BISULFATE
     Dosage: 1 DOSAGE FORM, QD
     Dates: start: 20240914, end: 20241024
  16. CLOPIDOGREL BISULFATE [Concomitant]
     Active Substance: CLOPIDOGREL BISULFATE
     Dosage: 1 DOSAGE FORM, QD
     Route: 065
     Dates: start: 20240914, end: 20241024
  17. CLOPIDOGREL BISULFATE [Concomitant]
     Active Substance: CLOPIDOGREL BISULFATE
     Dosage: 1 DOSAGE FORM, QD
     Route: 065
     Dates: start: 20241025
  18. CLOPIDOGREL BISULFATE [Concomitant]
     Active Substance: CLOPIDOGREL BISULFATE
     Dosage: 1 DOSAGE FORM, QD
     Dates: start: 20241025
  19. CLOPIDOGREL BISULFATE [Concomitant]
     Active Substance: CLOPIDOGREL BISULFATE
     Dosage: 1 DOSAGE FORM, QD
     Dates: start: 20241025
  20. CLOPIDOGREL BISULFATE [Concomitant]
     Active Substance: CLOPIDOGREL BISULFATE
     Dosage: 1 DOSAGE FORM, QD
     Route: 065
     Dates: start: 20241025
  21. REBAMIPIDE [Concomitant]
     Active Substance: REBAMIPIDE
     Indication: Gastritis prophylaxis
     Dosage: 1 DOSAGE FORM, Q8H
     Dates: start: 20240914, end: 20241024
  22. REBAMIPIDE [Concomitant]
     Active Substance: REBAMIPIDE
     Dosage: 1 DOSAGE FORM, Q8H
     Route: 065
     Dates: start: 20240914, end: 20241024
  23. REBAMIPIDE [Concomitant]
     Active Substance: REBAMIPIDE
     Dosage: 1 DOSAGE FORM, Q8H
     Route: 065
     Dates: start: 20240914, end: 20241024
  24. REBAMIPIDE [Concomitant]
     Active Substance: REBAMIPIDE
     Dosage: 1 DOSAGE FORM, Q8H
     Dates: start: 20240914, end: 20241024
  25. LANSOPRAZOLE [Concomitant]
     Active Substance: LANSOPRAZOLE
     Indication: Gastritis prophylaxis
     Dosage: 8 DOSAGE FORM, QD
     Dates: start: 20240914, end: 20241024
  26. LANSOPRAZOLE [Concomitant]
     Active Substance: LANSOPRAZOLE
     Dosage: 8 DOSAGE FORM, QD
     Route: 065
     Dates: start: 20240914, end: 20241024
  27. LANSOPRAZOLE [Concomitant]
     Active Substance: LANSOPRAZOLE
     Dosage: 8 DOSAGE FORM, QD
     Route: 065
     Dates: start: 20240914, end: 20241024
  28. LANSOPRAZOLE [Concomitant]
     Active Substance: LANSOPRAZOLE
     Dosage: 8 DOSAGE FORM, QD
     Dates: start: 20240914, end: 20241024
  29. CHOLINE ALFOSCERATE [Concomitant]
     Active Substance: CHOLINE ALFOSCERATE
     Indication: Cerebral infarction
     Dosage: 1 DOSAGE FORM, Q8H
     Route: 065
     Dates: start: 20240914, end: 20241024
  30. CHOLINE ALFOSCERATE [Concomitant]
     Active Substance: CHOLINE ALFOSCERATE
     Dosage: 1 DOSAGE FORM, Q8H
     Dates: start: 20240914, end: 20241024
  31. CHOLINE ALFOSCERATE [Concomitant]
     Active Substance: CHOLINE ALFOSCERATE
     Dosage: 1 DOSAGE FORM, Q8H
     Dates: start: 20240914, end: 20241024
  32. CHOLINE ALFOSCERATE [Concomitant]
     Active Substance: CHOLINE ALFOSCERATE
     Dosage: 1 DOSAGE FORM, Q8H
     Route: 065
     Dates: start: 20240914, end: 20241024
  33. CHOLINE ALFOSCERATE [Concomitant]
     Active Substance: CHOLINE ALFOSCERATE
     Dosage: 1 DOSAGE FORM, BID
     Route: 065
     Dates: start: 20241025
  34. CHOLINE ALFOSCERATE [Concomitant]
     Active Substance: CHOLINE ALFOSCERATE
     Dosage: 1 DOSAGE FORM, BID
     Dates: start: 20241025
  35. CHOLINE ALFOSCERATE [Concomitant]
     Active Substance: CHOLINE ALFOSCERATE
     Dosage: 1 DOSAGE FORM, BID
     Dates: start: 20241025
  36. CHOLINE ALFOSCERATE [Concomitant]
     Active Substance: CHOLINE ALFOSCERATE
     Dosage: 1 DOSAGE FORM, BID
     Route: 065
     Dates: start: 20241025
  37. DIMENHYDRINATE [Concomitant]
     Active Substance: DIMENHYDRINATE
     Indication: Dizziness
     Dosage: 0.5 DOSAGE FORM, BID
     Dates: start: 20240914, end: 20241024
  38. DIMENHYDRINATE [Concomitant]
     Active Substance: DIMENHYDRINATE
     Dosage: 0.5 DOSAGE FORM, BID
     Route: 065
     Dates: start: 20240914, end: 20241024
  39. DIMENHYDRINATE [Concomitant]
     Active Substance: DIMENHYDRINATE
     Dosage: 0.5 DOSAGE FORM, BID
     Route: 065
     Dates: start: 20240914, end: 20241024
  40. DIMENHYDRINATE [Concomitant]
     Active Substance: DIMENHYDRINATE
     Dosage: 0.5 DOSAGE FORM, BID
     Dates: start: 20240914, end: 20241024
  41. AMITRIPTYLINE HYDROCHLORIDE [Concomitant]
     Active Substance: AMITRIPTYLINE HYDROCHLORIDE
     Indication: Depression
     Dosage: 0.5 DOSAGE FORM, BID
     Dates: start: 20240914, end: 20241024
  42. AMITRIPTYLINE HYDROCHLORIDE [Concomitant]
     Active Substance: AMITRIPTYLINE HYDROCHLORIDE
     Dosage: 0.5 DOSAGE FORM, BID
     Route: 065
     Dates: start: 20240914, end: 20241024
  43. AMITRIPTYLINE HYDROCHLORIDE [Concomitant]
     Active Substance: AMITRIPTYLINE HYDROCHLORIDE
     Dosage: 0.5 DOSAGE FORM, BID
     Route: 065
     Dates: start: 20240914, end: 20241024
  44. AMITRIPTYLINE HYDROCHLORIDE [Concomitant]
     Active Substance: AMITRIPTYLINE HYDROCHLORIDE
     Dosage: 0.5 DOSAGE FORM, BID
     Dates: start: 20240914, end: 20241024
  45. ACETAMINOPHEN [Concomitant]
     Active Substance: ACETAMINOPHEN
     Indication: Pyrexia
     Dosage: 100 MILLILITER, QD
     Dates: start: 20240916, end: 20241024
  46. ACETAMINOPHEN [Concomitant]
     Active Substance: ACETAMINOPHEN
     Dosage: 100 MILLILITER, QD
     Route: 065
     Dates: start: 20240916, end: 20241024
  47. ACETAMINOPHEN [Concomitant]
     Active Substance: ACETAMINOPHEN
     Dosage: 100 MILLILITER, QD
     Route: 065
     Dates: start: 20240916, end: 20241024
  48. ACETAMINOPHEN [Concomitant]
     Active Substance: ACETAMINOPHEN
     Dosage: 100 MILLILITER, QD
     Dates: start: 20240916, end: 20241024
  49. CEFTRIAXONE SODIUM [Concomitant]
     Active Substance: CEFTRIAXONE SODIUM
     Indication: Pyrexia
     Dosage: 2 GRAM, QD
     Dates: start: 20240918, end: 20240922
  50. CEFTRIAXONE SODIUM [Concomitant]
     Active Substance: CEFTRIAXONE SODIUM
     Dosage: 2 GRAM, QD
     Route: 065
     Dates: start: 20240918, end: 20240922
  51. CEFTRIAXONE SODIUM [Concomitant]
     Active Substance: CEFTRIAXONE SODIUM
     Dosage: 2 GRAM, QD
     Route: 065
     Dates: start: 20240918, end: 20240922
  52. CEFTRIAXONE SODIUM [Concomitant]
     Active Substance: CEFTRIAXONE SODIUM
     Dosage: 2 GRAM, QD
     Dates: start: 20240918, end: 20240922
  53. SACCHAROMYCES CEREVISIAE [Concomitant]
     Active Substance: SACCHAROMYCES CEREVISIAE
     Indication: Constipation prophylaxis
     Dosage: 1 DOSAGE FORM, BID
     Dates: start: 20240918, end: 20240929
  54. SACCHAROMYCES CEREVISIAE [Concomitant]
     Active Substance: SACCHAROMYCES CEREVISIAE
     Dosage: 1 DOSAGE FORM, BID
     Route: 065
     Dates: start: 20240918, end: 20240929
  55. SACCHAROMYCES CEREVISIAE [Concomitant]
     Active Substance: SACCHAROMYCES CEREVISIAE
     Dosage: 1 DOSAGE FORM, BID
     Route: 065
     Dates: start: 20240918, end: 20240929
  56. SACCHAROMYCES CEREVISIAE [Concomitant]
     Active Substance: SACCHAROMYCES CEREVISIAE
     Dosage: 1 DOSAGE FORM, BID
     Dates: start: 20240918, end: 20240929
  57. LACTULOSE [Concomitant]
     Active Substance: LACTULOSE
     Indication: Constipation
     Dosage: 2 DOSAGE FORM, QD (CONCENTRATE SOLUTION)
     Dates: start: 20240921, end: 20240921
  58. LACTULOSE [Concomitant]
     Active Substance: LACTULOSE
     Dosage: 2 DOSAGE FORM, QD (CONCENTRATE SOLUTION)
     Route: 065
     Dates: start: 20240921, end: 20240921
  59. LACTULOSE [Concomitant]
     Active Substance: LACTULOSE
     Dosage: 2 DOSAGE FORM, QD (CONCENTRATE SOLUTION)
     Route: 065
     Dates: start: 20240921, end: 20240921
  60. LACTULOSE [Concomitant]
     Active Substance: LACTULOSE
     Dosage: 2 DOSAGE FORM, QD (CONCENTRATE SOLUTION)
     Dates: start: 20240921, end: 20240921
  61. CEFDITOREN PIVOXIL [Concomitant]
     Active Substance: CEFDITOREN PIVOXIL
     Indication: Pyrexia
     Dosage: 1 DOSAGE FORM, Q8H
     Dates: start: 20240923, end: 20240929
  62. CEFDITOREN PIVOXIL [Concomitant]
     Active Substance: CEFDITOREN PIVOXIL
     Dosage: 1 DOSAGE FORM, Q8H
     Route: 065
     Dates: start: 20240923, end: 20240929
  63. CEFDITOREN PIVOXIL [Concomitant]
     Active Substance: CEFDITOREN PIVOXIL
     Dosage: 1 DOSAGE FORM, Q8H
     Route: 065
     Dates: start: 20240923, end: 20240929
  64. CEFDITOREN PIVOXIL [Concomitant]
     Active Substance: CEFDITOREN PIVOXIL
     Dosage: 1 DOSAGE FORM, Q8H
     Dates: start: 20240923, end: 20240929

REACTIONS (1)
  - Hypokalaemia [Recovered/Resolved]

NARRATIVE: CASE EVENT DATE: 20240915
